FAERS Safety Report 4955001-1 (Version None)
Quarter: 2006Q1

REPORT INFORMATION
  Report Type: 
  Country: None (occurrence: None)
  Receive Date: 20060321
  Receipt Date: 20060308
  Transmission Date: 20060701
  Serious: Yes (Hospitalization)
  Sender: FDA-Public Use
  Company Number: B0415746A

PATIENT
  Age: 49 Year
  Sex: Male

DRUGS (17)
  1. WELLBUTRIN [Suspect]
     Indication: MENTAL DISORDER
  2. LINEZOLID (FORMULATION UNKNOWN) (LINEZOLID) [Suspect]
     Indication: STAPHYLOCOCCAL INFECTION
  3. TRAZODONE HCL [Suspect]
     Indication: SLEEP DISORDER
  4. VENLAFAXINE HCL [Suspect]
     Indication: MENTAL DISORDER
  5. VANCOMYCIN [Suspect]
     Indication: STAPHYLOCOCCAL INFECTION
  6. CASPOFUNGIN [Concomitant]
  7. EPOGEN [Concomitant]
  8. CLONIDINE [Concomitant]
  9. ENOXAPARIN SODIUM [Concomitant]
  10. METOCLOPRAMIDE [Concomitant]
  11. METOPROLOL [Concomitant]
  12. FENTANYL [Concomitant]
  13. LANSOPRAZOLE [Concomitant]
  14. LISINOPRIL [Concomitant]
  15. NYSTATIN [Concomitant]
  16. GABAPENTIN [Concomitant]
  17. RISPERIDONE [Concomitant]

REACTIONS (8)
  - COMMUNICATION DISORDER [None]
  - CONFUSIONAL STATE [None]
  - COORDINATION ABNORMAL [None]
  - DIZZINESS [None]
  - DRUG INTERACTION [None]
  - RASH [None]
  - SEROTONIN SYNDROME [None]
  - STAPHYLOCOCCAL INFECTION [None]
